FAERS Safety Report 20660503 (Version 2)
Quarter: 2022Q2

REPORT INFORMATION
  Report Type: Spontaneous
  Country: US (occurrence: US)
  Receive Date: 20220331
  Receipt Date: 20220422
  Transmission Date: 20220721
  Serious: No
  Sender: FDA-Public Use
  Company Number: nICSR042

PATIENT
  Sex: 0

DRUGS (1)
  1. ASCLERA [Suspect]
     Active Substance: POLIDOCANOL

REACTIONS (2)
  - Injection site urticaria [Unknown]
  - Injection site pruritus [Unknown]

NARRATIVE: CASE EVENT DATE: 20220405
